FAERS Safety Report 18969653 (Version 1)
Quarter: 2021Q1

REPORT INFORMATION
  Report Type: Report from Study
  Country: US (occurrence: US)
  Receive Date: 20210304
  Receipt Date: 20210304
  Transmission Date: 20210420
  Serious: No
  Sender: FDA-Public Use
  Company Number: NVSC2021US042430

PATIENT
  Sex: Female

DRUGS (1)
  1. TABRECTA [Suspect]
     Active Substance: CAPMATINIB
     Indication: NEOPLASM MALIGNANT
     Dosage: 200 MG, BID
     Route: 048

REACTIONS (3)
  - Swelling [Unknown]
  - Rash [Unknown]
  - Tumour marker decreased [Unknown]
